FAERS Safety Report 5137053-1 (Version None)
Quarter: 2006Q4

REPORT INFORMATION
  Report Type: 
  Country: None (occurrence: None)
  Receive Date: 20061024
  Receipt Date: 20061024
  Transmission Date: 20070319
  Serious: Yes (Other)
  Sender: FDA-Public Use
  Company Number: None

PATIENT
  Age: 30 Year
  Sex: Female

DRUGS (3)
  1. TAXOTERE [Suspect]
     Dates: start: 20050822, end: 20050822
  2. CEFTIN [Concomitant]
  3. FLAGYL [Concomitant]

REACTIONS (15)
  - ABDOMINAL PAIN UPPER [None]
  - ALANINE AMINOTRANSFERASE INCREASED [None]
  - ASPARTATE AMINOTRANSFERASE INCREASED [None]
  - CHEST DISCOMFORT [None]
  - DIARRHOEA [None]
  - DRUG HYPERSENSITIVITY [None]
  - DRUG INTOLERANCE [None]
  - FLUSHING [None]
  - HEPATIC ENZYME ABNORMAL [None]
  - HEPATIC TRAUMA [None]
  - INFUSION RELATED REACTION [None]
  - NEUTROPENIA [None]
  - PYREXIA [None]
  - STOMACH DISCOMFORT [None]
  - THROAT TIGHTNESS [None]
